FAERS Safety Report 24634185 (Version 1)
Quarter: 2024Q4

REPORT INFORMATION
  Report Type: Spontaneous
  Country: US (occurrence: US)
  Receive Date: 20241119
  Receipt Date: 20241119
  Transmission Date: 20250115
  Serious: No
  Sender: SANOFI AVENTIS
  Company Number: US-SA-2024SA327230

PATIENT
  Sex: Female

DRUGS (11)
  1. KEVZARA [Suspect]
     Active Substance: SARILUMAB
     Indication: Rheumatoid arthritis
     Dosage: 200 MG, QOW
     Route: 058
  2. AMLODIPINE [Concomitant]
     Active Substance: AMLODIPINE BESYLATE
  3. CITALOPRAM [Concomitant]
     Active Substance: CITALOPRAM
  4. CLONAZEPAM [Concomitant]
     Active Substance: CLONAZEPAM
  5. FERROUS SULFATE [Concomitant]
     Active Substance: FERROUS SULFATE
  6. LINZESS [Concomitant]
     Active Substance: LINACLOTIDE
  7. LURASIDONE [Concomitant]
     Active Substance: LURASIDONE
  8. OCALIVA [Concomitant]
     Active Substance: OBETICHOLIC ACID
  9. PLAQUENIL [Concomitant]
     Active Substance: HYDROXYCHLOROQUINE SULFATE
  10. TRAZODONE HCL [Concomitant]
     Active Substance: TRAZODONE HYDROCHLORIDE
  11. URSODIOL [Concomitant]
     Active Substance: URSODIOL

REACTIONS (5)
  - Loss of personal independence in daily activities [Unknown]
  - Arthralgia [Unknown]
  - Weight increased [Unknown]
  - Gait disturbance [Unknown]
  - Depression [Unknown]
